FAERS Safety Report 25793131 (Version 1)
Quarter: 2025Q3

REPORT INFORMATION
  Report Type: Spontaneous
  Country: US (occurrence: US)
  Receive Date: 20250911
  Receipt Date: 20250911
  Transmission Date: 20251020
  Serious: Yes (Life-Threatening)
  Sender: MERZ
  Company Number: None

PATIENT

DRUGS (1)
  1. XEOMIN [Suspect]
     Active Substance: INCOBOTULINUMTOXINA
     Indication: Product used for unknown indication

REACTIONS (8)
  - Pain [Unknown]
  - Gait disturbance [Unknown]
  - Post procedural complication [Unknown]
  - Crying [Unknown]
  - Emotional distress [Unknown]
  - Anaesthetic complication [Unknown]
  - Pyrexia [Unknown]
  - Device malfunction [Unknown]

NARRATIVE: CASE EVENT DATE: 20250423
